FAERS Safety Report 6725402-X (Version None)
Quarter: 2010Q2

REPORT INFORMATION
  Report Type: 
  Country: None (occurrence: None)
  Receive Date: 20100514
  Receipt Date: 20100514
  Transmission Date: 20101027
  Serious: No
  Sender: FDA-Public Use
  Company Number: None

PATIENT
  Age: 11 Year
  Sex: Male
  Weight: 49.8957 kg

DRUGS (2)
  1. ZYRTEC [Suspect]
     Indication: SEASONAL ALLERGY
     Dosage: 10MG ONCE A DAY PO
     Route: 048
     Dates: start: 20061013, end: 20100512
  2. ZYRTEC [Suspect]
     Indication: URTICARIA THERMAL
     Dosage: 10MG ONCE A DAY PO
     Route: 048
     Dates: start: 20061013, end: 20100512

REACTIONS (4)
  - CRYING [None]
  - FEELING ABNORMAL [None]
  - PRURITUS GENERALISED [None]
  - VISION BLURRED [None]
